FAERS Safety Report 7739968-4 (Version None)
Quarter: 2011Q3

REPORT INFORMATION
  Report Type: 
  Country: None (occurrence: None)
  Receive Date: 20110909
  Receipt Date: 20110909
  Transmission Date: 20111222
  Serious: Yes (Other)
  Sender: FDA-Public Use
  Company Number: MX-PFIZER INC-2011208459

PATIENT
  Age: 53 Year
  Sex: Female
  Weight: 65 kg

DRUGS (1)
  1. SERTRALINE HYDROCHLORIDE [Suspect]
     Indication: DEPRESSION
     Dosage: 50 MG, 1X/DAY
     Route: 048
     Dates: start: 20110708, end: 20110713

REACTIONS (6)
  - FATIGUE [None]
  - DIARRHOEA [None]
  - HYPERTENSION [None]
  - DECREASED APPETITE [None]
  - ANXIETY [None]
  - HAEMOGLOBIN INCREASED [None]
